FAERS Safety Report 23262999 (Version 1)
Quarter: 2023Q4

REPORT INFORMATION
  Report Type: Report from Study
  Country: ES (occurrence: ES)
  Receive Date: 20231205
  Receipt Date: 20231205
  Transmission Date: 20240109
  Serious: Yes (Hospitalization)
  Sender: FDA-Public Use
  Company Number: ES-Eisai Medical Research-EC-2022-123556

PATIENT
  Age: 58 Year
  Sex: Male
  Weight: 69.3 kg

DRUGS (20)
  1. LENVATINIB [Suspect]
     Active Substance: LENVATINIB
     Indication: Renal cell carcinoma
     Route: 048
     Dates: start: 20190624, end: 20190714
  2. LENVATINIB [Suspect]
     Active Substance: LENVATINIB
     Route: 048
     Dates: start: 20190722, end: 20191117
  3. LENVATINIB [Suspect]
     Active Substance: LENVATINIB
     Route: 048
     Dates: start: 20191118, end: 20200301
  4. LENVATINIB [Suspect]
     Active Substance: LENVATINIB
     Route: 048
     Dates: start: 20200309, end: 20200628
  5. LENVATINIB [Suspect]
     Active Substance: LENVATINIB
     Route: 048
     Dates: start: 20200702, end: 20201229
  6. LENVATINIB [Suspect]
     Active Substance: LENVATINIB
     Route: 048
     Dates: start: 20210102, end: 20210914
  7. LENVATINIB [Suspect]
     Active Substance: LENVATINIB
     Route: 048
     Dates: start: 20210917, end: 20220710
  8. LENVATINIB [Suspect]
     Active Substance: LENVATINIB
     Route: 048
     Dates: start: 20220718, end: 20220911
  9. LENVATINIB [Suspect]
     Active Substance: LENVATINIB
     Route: 048
     Dates: start: 20221006, end: 20221026
  10. LENVATINIB [Suspect]
     Active Substance: LENVATINIB
     Route: 048
     Dates: start: 20221103, end: 20231018
  11. EVEROLIMUS [Suspect]
     Active Substance: EVEROLIMUS
     Indication: Renal cell carcinoma
     Route: 048
     Dates: start: 20190624, end: 20190714
  12. EVEROLIMUS [Suspect]
     Active Substance: EVEROLIMUS
     Route: 048
     Dates: start: 20190722, end: 20200301
  13. EVEROLIMUS [Suspect]
     Active Substance: EVEROLIMUS
     Route: 048
     Dates: start: 20200309, end: 20200628
  14. EVEROLIMUS [Suspect]
     Active Substance: EVEROLIMUS
     Route: 048
     Dates: start: 20200702, end: 20201229
  15. EVEROLIMUS [Suspect]
     Active Substance: EVEROLIMUS
     Route: 048
     Dates: start: 20210102, end: 20210914
  16. EVEROLIMUS [Suspect]
     Active Substance: EVEROLIMUS
     Route: 048
     Dates: start: 20210917, end: 20220710
  17. EVEROLIMUS [Suspect]
     Active Substance: EVEROLIMUS
     Route: 048
     Dates: start: 20220718, end: 20220911
  18. EVEROLIMUS [Suspect]
     Active Substance: EVEROLIMUS
     Route: 048
     Dates: start: 20221006, end: 20221026
  19. EVEROLIMUS [Suspect]
     Active Substance: EVEROLIMUS
     Route: 048
     Dates: start: 20221103, end: 20231018
  20. ATORVASTATIN [Concomitant]
     Active Substance: ATORVASTATIN
     Route: 048
     Dates: start: 20231005

REACTIONS (2)
  - Stomatitis [Recovered/Resolved]
  - Colitis [Recovered/Resolved]

NARRATIVE: CASE EVENT DATE: 20220825
